FAERS Safety Report 9400023 (Version 1)
Quarter: 2013Q3

REPORT INFORMATION
  Report Type: Spontaneous
  Country: US (occurrence: US)
  Receive Date: 20130715
  Receipt Date: 20130715
  Transmission Date: 20140515
  Serious: Yes (Other)
  Sender: FDA-Public Use
  Company Number: US-PFIZER INC-2013206517

PATIENT
  Age: 76 Year
  Sex: Male
  Weight: 88.89 kg

DRUGS (3)
  1. ADVIL [Suspect]
     Indication: BACK PAIN
     Dosage: 2 DF, 2X/DAY
     Route: 048
     Dates: start: 2008, end: 2008
  2. MELOXICAM [Concomitant]
     Dosage: UNK
  3. TOPROL [Concomitant]
     Dosage: UNK

REACTIONS (2)
  - Gastric ulcer [Recovered/Resolved]
  - Abdominal pain upper [Recovered/Resolved]
